FAERS Safety Report 8873403 (Version 2)
Quarter: 2013Q1

REPORT INFORMATION
  Report Type: Spontaneous
  Country: US (occurrence: US)
  Receive Date: 20121030
  Receipt Date: 20130116
  Transmission Date: 20140127
  Serious: Yes (Death)
  Sender: FDA-Public Use
  Company Number: US-ELI_LILLY_AND_COMPANY-US201210006896

PATIENT
  Age: 63 Year
  Sex: Male
  Weight: 63 kg

DRUGS (4)
  1. ALIMTA [Suspect]
     Indication: NON-SMALL CELL LUNG CANCER
     Dosage: 500 MG/M2, OTHER
     Route: 065
     Dates: start: 20110919, end: 20111121
  2. VITAMIN B12 [Concomitant]
     Dosage: 1000 UG, UNK
     Dates: start: 20110919
  3. FOLIC ACID [Concomitant]
     Dosage: 400 UG, UNK
     Route: 048
     Dates: start: 20110919
  4. DEXAMETHASONE [Concomitant]
     Dosage: 4 MG, UNK
     Dates: start: 20110919

REACTIONS (1)
  - Malignant neoplasm progression [Fatal]
